FAERS Safety Report 4712708-9 (Version None)
Quarter: 2005Q3

REPORT INFORMATION
  Report Type: 
  Country: None (occurrence: None)
  Receive Date: 20050706
  Receipt Date: 20050311
  Transmission Date: 20060218
  Serious: Yes (Hospitalization)
  Sender: FDA-Public Use
  Company Number: 0205007

PATIENT
  Age: 57 Year
  Sex: Male
  Weight: 99.7913 kg

DRUGS (1)
  1. DEPODUR (TM) (MORPHINE SULFATE EXTENDED-RELEASE LIPOSOME INJECTION) [Suspect]
     Indication: PAIN
     Dosage: (15 MG, ONCE), EPIDURAL
     Route: 008

REACTIONS (1)
  - HYPOTENSION [None]
